FAERS Safety Report 6942093-3 (Version None)
Quarter: 2010Q3

REPORT INFORMATION
  Report Type: 
  Country: None (occurrence: None)
  Receive Date: 20100823
  Receipt Date: 20100730
  Transmission Date: 20110219
  Serious: Yes (Hospitalization)
  Sender: FDA-Public Use
  Company Number: 2010EU003935

PATIENT
  Age: 55 Year
  Sex: Female

DRUGS (5)
  1. TACROLIMUS [Suspect]
     Indication: RENAL TRANSPLANT
     Dates: start: 20010101
  2. CORTICOSTEROIDS () [Suspect]
     Indication: RENAL TRANSPLANT
  3. AZATHIOPRINE [Suspect]
     Indication: RENAL TRANSPLANT
  4. CYCLOSPORINE [Suspect]
     Indication: RENAL TRANSPLANT
  5. ANTI-THYMOCYTE GLOBULIN NOS [Suspect]
     Indication: RENAL TRANSPLANT

REACTIONS (12)
  - ASTHENIA [None]
  - BLOOD CREATININE INCREASED [None]
  - DIARRHOEA [None]
  - DRUG ABUSE [None]
  - DRUG LEVEL INCREASED [None]
  - HIRSUTISM [None]
  - HUMERUS FRACTURE [None]
  - IMMUNOSUPPRESSANT DRUG LEVEL INCREASED [None]
  - NEPHROPATHY TOXIC [None]
  - OLIGURIA [None]
  - RENAL ISCHAEMIA [None]
  - RENAL PAPILLARY NECROSIS [None]
